FAERS Safety Report 10369899 (Version 2)
Quarter: 2014Q3

REPORT INFORMATION
  Report Type: Spontaneous
  Country: US (occurrence: US)
  Receive Date: 20140808
  Receipt Date: 20140915
  Transmission Date: 20150326
  Serious: Yes (Death, Hospitalization)
  Sender: FDA-Public Use
  Company Number: US-AMGEN-USASP2014059146

PATIENT
  Age: 60 Year
  Sex: Female
  Weight: 37.64 kg

DRUGS (1)
  1. PROLIA [Suspect]
     Active Substance: DENOSUMAB
     Indication: OSTEOPOROSIS
     Dosage: 60 MG/ML, Q6MO, ONCE
     Route: 058
     Dates: start: 20140206, end: 20140206

REACTIONS (1)
  - Metastases to lung [Fatal]
